FAERS Safety Report 19762941 (Version 1)
Quarter: 2021Q3

REPORT INFORMATION
  Report Type: Spontaneous
  Country: CA (occurrence: CA)
  Receive Date: 20210830
  Receipt Date: 20210830
  Transmission Date: 20211014
  Serious: Yes (Death, Hospitalization)
  Sender: FDA-Public Use
  Company Number: CA-TEVA-2021-CA-1946281

PATIENT
  Age: 89 Year
  Sex: Male

DRUGS (8)
  1. PANTOLOC [PANTOPRAZOLE] [Concomitant]
     Active Substance: PANTOPRAZOLE SODIUM
  2. VITAMIN D [Concomitant]
     Active Substance: VITAMIN D NOS
  3. ALLOPURINOL. [Concomitant]
     Active Substance: ALLOPURINOL
  4. XARELTO [Concomitant]
     Active Substance: RIVAROXABAN
  5. SILDENAFIL CITRATE. [Suspect]
     Active Substance: SILDENAFIL CITRATE
     Indication: PULMONARY ARTERIAL HYPERTENSION
     Dosage: 60 MILLIGRAM DAILY;
     Route: 048
  6. LYRICA [Concomitant]
     Active Substance: PREGABALIN
  7. OPSUMIT [Concomitant]
     Active Substance: MACITENTAN
  8. IRON [Concomitant]
     Active Substance: IRON

REACTIONS (2)
  - Death [Fatal]
  - Oxygen saturation decreased [Fatal]
